FAERS Safety Report 10525383 (Version 2)
Quarter: 2014Q4

REPORT INFORMATION
  Report Type: Spontaneous
  Country: NO (occurrence: NO)
  Receive Date: 20141017
  Receipt Date: 20141017
  Transmission Date: 20150528
  Serious: Yes (Death, Hospitalization)
  Sender: FDA-Public Use
  Company Number: NO-ABBVIE-14K-122-1288422-00

PATIENT
  Age: 38 Year
  Sex: Female

DRUGS (3)
  1. HUMIRA [Suspect]
     Active Substance: ADALIMUMAB
     Indication: CROHN^S DISEASE
     Route: 058
     Dates: start: 20130510
  2. IMUREL [Suspect]
     Active Substance: AZATHIOPRINE SODIUM
     Indication: CROHN^S DISEASE
     Dosage: DIVIDED INTO 100 X 50 MG DAILY
     Route: 048
     Dates: start: 20130510
  3. CEFOTAXIME [Suspect]
     Active Substance: CEFOTAXIME\CEFOTAXIME SODIUM
     Indication: INFECTION
     Dosage: 1 DOSE
     Route: 065
     Dates: start: 201406, end: 201406

REACTIONS (6)
  - Drug hypersensitivity [Unknown]
  - Flushing [Unknown]
  - Cardiovascular disorder [Fatal]
  - Feeling hot [Unknown]
  - Sepsis [Fatal]
  - Disseminated intravascular coagulation [Fatal]

NARRATIVE: CASE EVENT DATE: 201406
